FAERS Safety Report 15536533 (Version 1)
Quarter: 2018Q4

REPORT INFORMATION
  Report Type: Report from Study
  Country: US (occurrence: US)
  Receive Date: 20181022
  Receipt Date: 20181022
  Transmission Date: 20190205
  Serious: Yes (Death, Hospitalization)
  Sender: FDA-Public Use
  Company Number: US-ROCHE-2198704

PATIENT
  Age: 67 Year
  Sex: Male

DRUGS (2)
  1. OCREVUS [Suspect]
     Active Substance: OCRELIZUMAB
     Indication: PRIMARY PROGRESSIVE MULTIPLE SCLEROSIS
     Dosage: 300 MG IV ON DAY 1 AND DAY 15
     Route: 042
     Dates: start: 20180319
  2. OCREVUS [Suspect]
     Active Substance: OCRELIZUMAB
     Route: 042
     Dates: start: 20180404

REACTIONS (4)
  - Death [Fatal]
  - Hallucination [Unknown]
  - Urinary tract infection [Recovering/Resolving]
  - Psychotic behaviour [Unknown]

NARRATIVE: CASE EVENT DATE: 20180723
